FAERS Safety Report 20168173 (Version 3)
Quarter: 2021Q4

REPORT INFORMATION
  Report Type: Report from Study
  Country: KR (occurrence: KR)
  Receive Date: 20211210
  Receipt Date: 20211221
  Transmission Date: 20220303
  Serious: Yes (Hospitalization)
  Sender: FDA-Public Use
  Company Number: KR-CELLTRION INC.-2021KR016263

PATIENT

DRUGS (21)
  1. TRUXIMA [Suspect]
     Active Substance: RITUXIMAB-ABBS
     Indication: Waldenstrom^s macroglobulinaemia
     Dosage: 375MG/M2(ACTUAL DOSE  600MG)
     Route: 042
     Dates: start: 20211123, end: 20211123
  2. TRUXIMA [Suspect]
     Active Substance: RITUXIMAB-ABBS
     Dosage: 375MG/M2(ACTUAL DOSE  600MG)
     Route: 042
     Dates: start: 20211123, end: 20211123
  3. NORVASC [Concomitant]
     Active Substance: AMLODIPINE BESYLATE
     Indication: Hypertension
     Dosage: 5 MG, QD
     Route: 048
  4. TELMICAN [Concomitant]
     Indication: Hypertension
     Dosage: 80 MG, QD
     Route: 048
  5. FEBUXOSTAT [Concomitant]
     Active Substance: FEBUXOSTAT
     Indication: Anaemia
     Dosage: 1 TAB, QD
     Route: 048
     Dates: start: 20211111
  6. ACYCLOVIR [Concomitant]
     Active Substance: ACYCLOVIR
     Indication: Infection prophylaxis
     Dosage: 200 MG, QD
     Route: 048
     Dates: start: 20211123
  7. ASPIRIN [Concomitant]
     Active Substance: ASPIRIN
     Indication: Thrombosis prophylaxis
     Dosage: 100 MG, QD
     Route: 048
     Dates: start: 20211123
  8. PENIRAMIN [Concomitant]
     Indication: Premedication
     Dosage: 4 MG, PRN
     Route: 042
     Dates: start: 20211123
  9. ACETAMINOPHEN [Concomitant]
     Active Substance: ACETAMINOPHEN
     Indication: Premedication
     Dosage: 1 TAB, PRN
     Route: 048
     Dates: start: 20211123
  10. PANTOPRAZOLE SODIUM [Concomitant]
     Active Substance: PANTOPRAZOLE SODIUM
     Indication: Prophylaxis against gastrointestinal ulcer
     Dosage: 20 MG, QD
     Route: 048
     Dates: start: 20211118
  11. ENDIS [Concomitant]
     Indication: Prophylaxis
     Dosage: 1 CAP, BID
     Route: 048
     Dates: start: 20211119
  12. ENDIS [Concomitant]
     Indication: Productive cough
  13. XANAX [Concomitant]
     Active Substance: ALPRAZOLAM
     Indication: Anxiety disorder
     Dosage: 1 TAB, BID
     Route: 048
  14. LEVOFLOXACIN [Concomitant]
     Active Substance: LEVOFLOXACIN
     Indication: Bronchitis viral
     Dosage: 750 MG, QOD
     Route: 042
     Dates: start: 20211130, end: 20211206
  15. PIPERACILLIN SODIUM\TAZOBACTAM SODIUM [Concomitant]
     Active Substance: PIPERACILLIN SODIUM\TAZOBACTAM SODIUM
     Indication: Bronchitis viral
     Dosage: 3.4 G, QID
     Route: 042
     Dates: start: 20211130, end: 20211206
  16. PROPACETAMOL HYDROCHLORIDE [Concomitant]
     Active Substance: PROPACETAMOL HYDROCHLORIDE
     Indication: Prophylaxis
     Dosage: 1 G, PRN
     Route: 048
     Dates: start: 20211130, end: 20211206
  17. PROPACETAMOL HYDROCHLORIDE [Concomitant]
     Active Substance: PROPACETAMOL HYDROCHLORIDE
     Indication: Pyrexia
  18. PROPIVERINE [Concomitant]
     Active Substance: PROPIVERINE
     Indication: Pollakiuria
     Dosage: 20 MG, QD
     Route: 048
     Dates: start: 20211202
  19. LEXAPRO [Concomitant]
     Active Substance: ESCITALOPRAM OXALATE
     Indication: Anxiety disorder
     Dosage: 5 MG, QD
     Route: 048
  20. HARNAL [Concomitant]
     Active Substance: TAMSULOSIN HYDROCHLORIDE
     Indication: Pollakiuria
     Dosage: 1 TABLET, QD
     Route: 048
     Dates: start: 20211202
  21. TRAZODONE HYDROCHLORIDE [Concomitant]
     Active Substance: TRAZODONE HYDROCHLORIDE
     Indication: Anxiety disorder
     Dosage: 1 TABLET, QD
     Route: 048

REACTIONS (4)
  - Acute kidney injury [Recovering/Resolving]
  - Pyrexia [Not Recovered/Not Resolved]
  - Bronchitis viral [Recovered/Resolved]
  - Off label use [Unknown]

NARRATIVE: CASE EVENT DATE: 20211130
